FAERS Safety Report 8909905 (Version 2)
Quarter: 2014Q2

REPORT INFORMATION
  Report Type: Spontaneous
  Country: FR (occurrence: FR)
  Receive Date: 20121115
  Receipt Date: 20131018
  Transmission Date: 20141212
  Serious: Yes (Hospitalization)
  Sender: FDA-Public Use
  Company Number: FR-PFIZER INC-2012284016

PATIENT
  Age: 63 Year
  Sex: Male

DRUGS (3)
  1. SEVREDOL [Suspect]
     Indication: PREMEDICATION
     Dosage: 1 DF, DAILY
     Route: 048
     Dates: start: 20120911, end: 20120911
  2. XANAX [Concomitant]
     Dosage: UNK
     Route: 048
  3. ATARAX [Concomitant]
     Dosage: UNK
     Route: 048

REACTIONS (3)
  - Abdominal pain [Recovering/Resolving]
  - Biliary dilatation [Recovering/Resolving]
  - Lipase increased [Recovered/Resolved]
